FAERS Safety Report 16974193 (Version 1)
Quarter: 2019Q4

REPORT INFORMATION
  Report Type: Spontaneous
  Country: US (occurrence: US)
  Receive Date: 20190912
  Receipt Date: 20190912
  Transmission Date: 20200122
  Serious: No
  Sender: FDA-Public Use
  Company Number: None

PATIENT
  Age: 89 Year
  Sex: Female
  Weight: 46.27 kg

DRUGS (25)
  1. SYSTANE SOL [Concomitant]
  2. ANTIOVIBRANT VITAMIN [Concomitant]
  3. DULCOLAX NOS [Concomitant]
     Active Substance: BISACODYL OR DOCUSATE SODIUM
  4. XARELTO [Concomitant]
     Active Substance: RIVAROXABAN
  5. ESCITALOPRAM [Concomitant]
     Active Substance: ESCITALOPRAM OXALATE
  6. LISINOPRIL. [Concomitant]
     Active Substance: LISINOPRIL
  7. SYNTHROID [Concomitant]
     Active Substance: LEVOTHYROXINE SODIUM
  8. METOPROLOL TARTRATE. [Concomitant]
     Active Substance: METOPROLOL TARTRATE
  9. MYLANTA SUSP [Concomitant]
  10. PREDNISONE 10MG [Suspect]
     Active Substance: PREDNISONE
     Indication: HYPERHIDROSIS
     Dosage: ?          QUANTITY:10 MG MILLIGRAM(S);?
     Route: 048
     Dates: start: 20190801, end: 20190803
  11. NASONEX [Concomitant]
     Active Substance: MOMETASONE FUROATE
  12. CALCITRATE [Concomitant]
     Active Substance: CALCIUM CITRATE
  13. ASA [Concomitant]
     Active Substance: ASPIRIN
  14. NORCO 5 [Concomitant]
  15. PREDNISONE 10MG [Suspect]
     Active Substance: PREDNISONE
     Indication: FEELING HOT
     Dosage: ?          QUANTITY:10 MG MILLIGRAM(S);?
     Route: 048
     Dates: start: 20190801, end: 20190803
  16. PREDNISONE 10MG [Suspect]
     Active Substance: PREDNISONE
     Indication: CHILLS
     Dosage: ?          QUANTITY:10 MG MILLIGRAM(S);?
     Route: 048
     Dates: start: 20190801, end: 20190803
  17. CRESTOR [Concomitant]
     Active Substance: ROSUVASTATIN CALCIUM
  18. RESTORIL [Concomitant]
     Active Substance: TEMAZEPAM
  19. MAGNESIUM OXIDE. [Concomitant]
     Active Substance: MAGNESIUM OXIDE
  20. MELATONIN [Concomitant]
     Active Substance: MELATONIN
  21. OMEGA 3 [Concomitant]
     Active Substance: OMEGA-3 FATTY ACIDS
  22. AMLODIPINE BESYLATE. [Concomitant]
     Active Substance: AMLODIPINE BESYLATE
  23. AZITHROMYCIN ANHYDROUS. [Concomitant]
     Active Substance: AZITHROMYCIN ANHYDROUS
  24. DIGOXIN. [Concomitant]
     Active Substance: DIGOXIN
  25. IMODIUM [Concomitant]
     Active Substance: LOPERAMIDE HYDROCHLORIDE

REACTIONS (12)
  - Urine abnormality [None]
  - Arrhythmia [None]
  - Bronchitis [None]
  - Hyperhidrosis [None]
  - Chills [None]
  - Pain [None]
  - Tinnitus [None]
  - Tooth disorder [None]
  - Dysuria [None]
  - Insomnia [None]
  - Feeling abnormal [None]
  - Renal disorder [None]

NARRATIVE: CASE EVENT DATE: 20190801
